FAERS Safety Report 4725330-5 (Version None)
Quarter: 2005Q3

REPORT INFORMATION
  Report Type: 
  Country: None (occurrence: None)
  Receive Date: 20050725
  Receipt Date: 20050711
  Transmission Date: 20060218
  Serious: Yes (Other)
  Sender: FDA-Public Use
  Company Number: 2005-BP-11588RO

PATIENT
  Age: 29 Year
  Sex: Female

DRUGS (3)
  1. METHADONE HCL [Suspect]
  2. LAMICTAL [Suspect]
     Indication: AFFECTIVE DISORDER
     Dosage: PO
     Route: 048
  3. RISPERDAL [Suspect]

REACTIONS (9)
  - DYSTONIA [None]
  - EYELID MARGIN CRUSTING [None]
  - HEADACHE [None]
  - HEMIPARESIS [None]
  - MUSCULOSKELETAL STIFFNESS [None]
  - NAUSEA [None]
  - SPUTUM DISCOLOURED [None]
  - TORTICOLLIS [None]
  - TREATMENT NONCOMPLIANCE [None]
